FAERS Safety Report 5740105-6 (Version None)
Quarter: 2008Q2

REPORT INFORMATION
  Report Type: 
  Country: None (occurrence: None)
  Receive Date: 20080513
  Receipt Date: 20080428
  Transmission Date: 20081010
  Serious: Yes (Hospitalization)
  Sender: FDA-Public Use
  Company Number: 2008S1007310

PATIENT
  Age: 65 Year
  Sex: Male

DRUGS (2)
  1. ALLOPURINOL [Suspect]
     Indication: DRUG USE FOR UNKNOWN INDICATION
     Dosage: 300 MG; DAILY; ORAL
     Route: 048
     Dates: start: 20071111, end: 20080111
  2. CO-TRIMOXAZOLE (CO-TRIMOXAZOLE) [Suspect]
     Indication: DRUG USE FOR UNKNOWN INDICATION
     Dosage: 960 MG; ; ORAL
     Route: 048
     Dates: start: 20080104, end: 20080111

REACTIONS (2)
  - ADVERSE DRUG REACTION [None]
  - HEPATITIS [None]
